FAERS Safety Report 16379051 (Version 1)
Quarter: 2019Q2

REPORT INFORMATION
  Report Type: Spontaneous
  Country: US (occurrence: US)
  Receive Date: 20190531
  Receipt Date: 20190531
  Transmission Date: 20190711
  Serious: No
  Sender: FDA-Public Use
  Company Number: US-BAUSCH-BL-2019-015422

PATIENT
  Age: 53 Year
  Sex: Female

DRUGS (3)
  1. LUMIFY [Suspect]
     Active Substance: BRIMONIDINE TARTRATE
     Dosage: 1 DROP IN BOTH EYES AS NEEDED. PATIENT USED SUSPECT PRODUCT ONCE.
     Route: 047
     Dates: start: 20190519, end: 20190519
  2. LUMIFY [Suspect]
     Active Substance: BRIMONIDINE TARTRATE
     Dosage: 1 DROP IN BOTH EYES AS NEEDED. PATIENT USED SUSPECT PRODUCT ONCE.
     Route: 047
     Dates: start: 20190523, end: 20190523
  3. LUMIFY [Suspect]
     Active Substance: BRIMONIDINE TARTRATE
     Indication: OCULAR HYPERAEMIA
     Dosage: 1 DROP IN BOTH EYES AS NEEDED. PATIENT USED SUSPECT PRODUCT ONCE.
     Route: 047
     Dates: start: 20190518, end: 20190518

REACTIONS (5)
  - Drug hypersensitivity [Unknown]
  - Rhinorrhoea [Not Recovered/Not Resolved]
  - Sneezing [Not Recovered/Not Resolved]
  - Dry mouth [Not Recovered/Not Resolved]
  - Sinus disorder [Not Recovered/Not Resolved]

NARRATIVE: CASE EVENT DATE: 201905
